FAERS Safety Report 9106524 (Version 1)
Quarter: 2013Q1

REPORT INFORMATION
  Report Type: Spontaneous
  Country: US (occurrence: US)
  Receive Date: 20130221
  Receipt Date: 20130221
  Transmission Date: 20140127
  Serious: No
  Sender: FDA-Public Use
  Company Number: US-PFIZER INC-2013063685

PATIENT
  Sex: 0

DRUGS (2)
  1. DILANTIN [Suspect]
     Indication: COMPLEX PARTIAL SEIZURES
     Dosage: 100 MG, 3X/DAY
     Dates: start: 20130208
  2. TEGRETOL [Suspect]
     Dosage: 100 MG, 3X/DAY
     Dates: start: 20130124

REACTIONS (2)
  - Erythema [Unknown]
  - Pruritus [Unknown]
